FAERS Safety Report 6074718-1 (Version None)
Quarter: 2009Q1

REPORT INFORMATION
  Report Type: 
  Country: None (occurrence: None)
  Receive Date: 20090212
  Receipt Date: 20090209
  Transmission Date: 20090719
  Serious: Yes (Hospitalization)
  Sender: FDA-Public Use
  Company Number: US-JNJFOC-20090202564

PATIENT
  Age: 14 Year
  Sex: Male

DRUGS (5)
  1. HALDOL [Suspect]
     Indication: DRUG USE FOR UNKNOWN INDICATION
     Route: 048
  2. ABILIFY [Concomitant]
     Route: 065
  3. DEPAKOTE [Concomitant]
     Route: 065
  4. LITHIUM CARBONATE [Concomitant]
     Route: 065
  5. CLOZARIL [Concomitant]
     Route: 065

REACTIONS (2)
  - HOSPITALISATION [None]
  - NEUROLEPTIC MALIGNANT SYNDROME [None]
